FAERS Safety Report 7166325-4 (Version None)
Quarter: 2010Q4

REPORT INFORMATION
  Report Type: 
  Country: None (occurrence: None)
  Receive Date: 20101216
  Receipt Date: 20100927
  Transmission Date: 20110411
  Serious: No
  Sender: FDA-Public Use
  Company Number: US-ABBOTT-10P-163-0674979-00

PATIENT
  Sex: Male
  Weight: 113.5 kg

DRUGS (11)
  1. TRILIPIX [Suspect]
     Indication: BLOOD TRIGLYCERIDES INCREASED
     Dates: start: 20100201
  2. AVODART [Suspect]
     Indication: PROSTATOMEGALY
  3. GLYBURIDE [Concomitant]
     Indication: DIABETES MELLITUS
     Dosage: UNKNOWN
  4. JANUMET [Concomitant]
     Indication: DIABETES MELLITUS
     Dosage: 50/1000 MG, 2 IN 1 D
  5. SIMVASTATIN [Concomitant]
     Indication: BLOOD TRIGLYCERIDES INCREASED
  6. LISINOPRIL [Concomitant]
     Indication: CORONARY ARTERY BYPASS
     Dosage: 20/125, DAILY
  7. METOPROLOL [Concomitant]
     Indication: CORONARY ARTERY BYPASS
  8. ARICEPT [Concomitant]
     Indication: DEMENTIA ALZHEIMER'S TYPE
  9. BYETTA [Concomitant]
     Indication: DIABETES MELLITUS
  10. FLOMAX [Concomitant]
     Indication: PROSTATOMEGALY
  11. FINASTERIDE [Concomitant]
     Indication: PROSTATOMEGALY
     Dosage: UNKNOWN

REACTIONS (1)
  - BLOOD TRIGLYCERIDES INCREASED [None]
